FAERS Safety Report 4728244-X (Version None)
Quarter: 2005Q3

REPORT INFORMATION
  Report Type: 
  Country: None (occurrence: None)
  Receive Date: 20050727
  Receipt Date: 20050712
  Transmission Date: 20060218
  Serious: Yes (Death, Life-Threatening, Hospitalization)
  Sender: FDA-Public Use
  Company Number: 2005-00848

PATIENT
  Age: 68 Year
  Sex: Female
  Weight: 55 kg

DRUGS (7)
  1. VELCADE [Suspect]
     Indication: MULTIPLE MYELOMA
     Dosage: 1.94 MG, 2/WEEK, IV BOLU; 1.91 MG, 2/WKK, IV BOLUS
     Route: 040
     Dates: start: 20050318, end: 20050407
  2. VELCADE [Suspect]
     Indication: MULTIPLE MYELOMA
     Dosage: 1.94 MG, 2/WEEK, IV BOLU; 1.91 MG, 2/WKK, IV BOLUS
     Route: 040
     Dates: start: 20050408, end: 20050415
  3. BONALON (ALENDRONATE SODIUM) TABLET [Concomitant]
  4. GASTER OD (FAMOTIDINE) TABLET [Concomitant]
  5. MUCOSTA (REBAMIPIDE) TABLET [Concomitant]
  6. ALFARCOL (ALFACALCIDOL) CAPSULE [Concomitant]
  7. LOXONIN (LOXOPROFEN SODIUM) TABLET) [Concomitant]

REACTIONS (39)
  - ACIDOSIS [None]
  - ACUTE RESPIRATORY DISTRESS SYNDROME [None]
  - ADRENAL INSUFFICIENCY [None]
  - ALANINE AMINOTRANSFERASE INCREASED [None]
  - ASPARTATE AMINOTRANSFERASE INCREASED [None]
  - BACTERIAL INFECTION [None]
  - BLOOD BICARBONATE DECREASED [None]
  - BLOOD CALCIUM DECREASED [None]
  - BLOOD CREATINE PHOSPHOKINASE INCREASED [None]
  - BLOOD LACTATE DEHYDROGENASE INCREASED [None]
  - BLOOD SODIUM DECREASED [None]
  - BRONCHIECTASIS [None]
  - CARDIOMEGALY [None]
  - COUGH [None]
  - DECREASED APPETITE [None]
  - DIARRHOEA [None]
  - DIFFUSE ALVEOLAR DAMAGE [None]
  - GENERAL PHYSICAL HEALTH DETERIORATION [None]
  - HAEMATOCRIT DECREASED [None]
  - HAEMOGLOBIN DECREASED [None]
  - HYPERCAPNIA [None]
  - HYPERTHERMIA [None]
  - HYPOXIA [None]
  - INTERSTITIAL LUNG DISEASE [None]
  - PLEURAL EFFUSION [None]
  - PNEUMOCYSTIS JIROVECI PNEUMONIA [None]
  - PNEUMONIA BACTERIAL [None]
  - PNEUMOTHORAX [None]
  - PROTEIN TOTAL INCREASED [None]
  - PULMONARY FIBROSIS [None]
  - RED BLOOD CELL COUNT DECREASED [None]
  - RENAL IMPAIRMENT [None]
  - RESPIRATORY DISTRESS [None]
  - RESPIRATORY FAILURE [None]
  - SEPSIS [None]
  - SERUM FERRITIN INCREASED [None]
  - STAPHYLOCOCCAL INFECTION [None]
  - UNRESPONSIVE TO VERBAL STIMULI [None]
  - WHITE BLOOD CELL COUNT DECREASED [None]
